FAERS Safety Report 5106272-2 (Version None)
Quarter: 2006Q3

REPORT INFORMATION
  Report Type: 
  Country: None (occurrence: None)
  Receive Date: 20060918
  Receipt Date: 20050907
  Transmission Date: 20061208
  Serious: Yes (Disabling, Other)
  Sender: FDA-Public Use
  Company Number: US-BAYER-200511849BWH

PATIENT
  Age: 76 Year
  Sex: Male

DRUGS (6)
  1. LEVITRA [Suspect]
     Indication: ERECTILE DYSFUNCTION
     Dosage: TOTAL DAILY DOSE: 20 MG  UNIT DOSE: 20 MG
     Route: 048
     Dates: start: 20030101
  2. VIAGRA [Suspect]
     Dosage: TOTAL DAILY DOSE: 100 MG  UNIT DOSE: 100 MG
     Route: 048
  3. CIALIS [Suspect]
     Dosage: TOTAL DAILY DOSE: 20 MG  UNIT DOSE: 20 MG
     Route: 048
  4. TOPROL-XL [Concomitant]
     Indication: ATRIAL FIBRILLATION
     Dosage: TOTAL DAILY DOSE: 100 MG  UNIT DOSE: 100 MG
     Route: 048
     Dates: start: 20000101
  5. COUMADIN [Concomitant]
     Indication: ATRIAL FIBRILLATION
     Dosage: TOTAL DAILY DOSE: 6 MG  UNIT DOSE: 6 MG
     Route: 048
     Dates: start: 19950101
  6. ALLOPURINOL [Concomitant]
     Indication: GOUT
     Dosage: TOTAL DAILY DOSE: 300 MG  UNIT DOSE: 300 MG
     Route: 048
     Dates: start: 20040101

REACTIONS (3)
  - MACULAR DEGENERATION [None]
  - VISUAL ACUITY REDUCED [None]
  - VISUAL DISTURBANCE [None]
